FAERS Safety Report 5808620-4 (Version None)
Quarter: 2008Q3

REPORT INFORMATION
  Report Type: 
  Country: None (occurrence: None)
  Receive Date: 20080714
  Receipt Date: 20080703
  Transmission Date: 20090109
  Serious: Yes (Other)
  Sender: FDA-Public Use
  Company Number: GB-JNJFOC-20080701282

PATIENT
  Sex: Female
  Weight: 56 kg

DRUGS (7)
  1. REMICADE [Suspect]
     Indication: RHEUMATOID ARTHRITIS
     Route: 042
  2. METHOTREXATE [Concomitant]
  3. PREDNISOLONE [Concomitant]
  4. FERROUS SULFATE TAB [Concomitant]
  5. FOSAMAX [Concomitant]
  6. ACETAMINOPHEN [Concomitant]
  7. VOLTAREN [Concomitant]

REACTIONS (1)
  - PARAGANGLION NEOPLASM [None]
